FAERS Safety Report 10560166 (Version 2)
Quarter: 2014Q4

REPORT INFORMATION
  Report Type: Spontaneous
  Country: KW (occurrence: KW)
  Receive Date: 20141103
  Receipt Date: 20141126
  Transmission Date: 20150529
  Serious: Yes (Life-Threatening, Hospitalization, Other)
  Sender: FDA-Public Use
  Company Number: KW-JNJFOC-20141021001

PATIENT
  Age: 47 Year
  Sex: Male
  Weight: 43 kg

DRUGS (3)
  1. AZATHIOPRINE. [Concomitant]
     Active Substance: AZATHIOPRINE
     Route: 065
  2. REMICADE [Suspect]
     Active Substance: INFLIXIMAB
     Indication: COLITIS ULCERATIVE
     Dosage: 1ST DOSE, INDUCTION DOSE 0,2, 6,14 WEEKS
     Route: 042
     Dates: start: 20140802, end: 20140928
  3. ASACOL [Concomitant]
     Active Substance: MESALAMINE
     Route: 065

REACTIONS (10)
  - Intracardiac thrombus [Recovered/Resolved]
  - Mouth ulceration [Recovered/Resolved]
  - Acute kidney injury [Recovered/Resolved]
  - Colitis ulcerative [Recovering/Resolving]
  - Cerebral infarction [Recovering/Resolving]
  - Dehydration [Unknown]
  - Anal fistula [Unknown]
  - Anaemia [Recovering/Resolving]
  - Vomiting [Recovered/Resolved]
  - Haemorrhoids [Unknown]

NARRATIVE: CASE EVENT DATE: 2014
